FAERS Safety Report 4404234-1 (Version None)
Quarter: 2004Q3

REPORT INFORMATION
  Report Type: 
  Country: None (occurrence: None)
  Receive Date: 20040720
  Receipt Date: 20040706
  Transmission Date: 20050211
  Serious: Yes (Death)
  Sender: FDA-Public Use
  Company Number: JP-JNJFOC-20040105873

PATIENT
  Age: 55 Year
  Sex: Male

DRUGS (5)
  1. FENTANYL [Suspect]
     Indication: CANCER PAIN
     Dosage: 2.5 MG, 1 IN 72 HOUR, TRANSDERMAL
     Route: 062
     Dates: start: 20040123, end: 20040126
  2. ADRENAL HORMONE PREPARATIONS (ALL OTHER THERAPEUTIC PRODUCTS) [Concomitant]
  3. FUROSEMIDE [Concomitant]
  4. MORPHINE [Concomitant]
  5. FUROSEMIDE [Concomitant]

REACTIONS (4)
  - BLOOD UREA INCREASED [None]
  - LUNG NEOPLASM MALIGNANT [None]
  - MALIGNANT NEOPLASM PROGRESSION [None]
  - METASTASES TO LIVER [None]
